FAERS Safety Report 9510009 (Version 2)
Quarter: 2013Q3

REPORT INFORMATION
  Report Type: Spontaneous
  Country: US (occurrence: US)
  Receive Date: 20130909
  Receipt Date: 20130909
  Transmission Date: 20140515
  Serious: No
  Sender: FDA-Public Use
  Company Number: US-BRISTOL-MYERS SQUIBB COMPANY-18867408

PATIENT
  Age: 76 Year
  Sex: Male
  Weight: 101.13 kg

DRUGS (6)
  1. ABILIFY TABS 10 MG [Suspect]
     Indication: DEPRESSION
     Route: 048
     Dates: start: 201207
  2. TRAZODONE HCL [Concomitant]
  3. SIMVASTATIN [Concomitant]
     Dosage: PILLS
  4. LEVOTHYROXINE [Concomitant]
  5. OMEPRAZOLE [Concomitant]
  6. BUPROPION [Concomitant]

REACTIONS (4)
  - Pain in extremity [Unknown]
  - Dizziness [Unknown]
  - Weight increased [Unknown]
  - Wrong technique in drug usage process [Unknown]
